FAERS Safety Report 7196867-7 (Version None)
Quarter: 2010Q4

REPORT INFORMATION
  Report Type: 
  Country: None (occurrence: None)
  Receive Date: 20101223
  Receipt Date: 20101202
  Transmission Date: 20110411
  Serious: Yes (Other)
  Sender: FDA-Public Use
  Company Number: US-AMGEN-USASP2010001913

PATIENT

DRUGS (6)
  1. ENBREL [Suspect]
     Indication: PSORIASIS
     Dosage: 50 MG, QWK
     Dates: start: 20100324, end: 20101123
  2. ENBREL [Suspect]
     Dosage: 50 MG, QWK
     Dates: start: 20091001, end: 20100910
  3. ALPRAZOLAM [Concomitant]
     Dosage: 0.5 MG, UNK
  4. RANITIDINE [Concomitant]
     Dosage: 150 MG, UNK
  5. PANTOPRAZOLE [Concomitant]
     Dosage: 40 MG, UNK
  6. LOSARTAN [Concomitant]
     Dosage: 50 MG, UNK

REACTIONS (5)
  - ARTHRALGIA [None]
  - ARTHRITIS [None]
  - GAIT DISTURBANCE [None]
  - KIDNEY INFECTION [None]
  - PSORIASIS [None]
